FAERS Safety Report 24549882 (Version 1)
Quarter: 2024Q4

REPORT INFORMATION
  Report Type: Spontaneous
  Country: DE (occurrence: DE)
  Receive Date: 20241025
  Receipt Date: 20241025
  Transmission Date: 20250115
  Serious: Yes (Other)
  Sender: SANDOZ
  Company Number: DE-002147023-NVSC2020DE040664

PATIENT
  Sex: Female

DRUGS (8)
  1. FULVESTRANT [Suspect]
     Active Substance: FULVESTRANT
     Indication: Breast cancer metastatic
     Dosage: 250 MG, QD (EVERY 4 WEEKS)
     Route: 058
     Dates: start: 20210830, end: 20220117
  2. FULVESTRANT [Suspect]
     Active Substance: FULVESTRANT
     Indication: HER2 positive breast cancer
  3. KISQALI [Suspect]
     Active Substance: RIBOCICLIB
     Indication: HER2 positive breast cancer
     Dosage: 400 MG, QD, (SCHEME: 21 DAYS INTAKE, 7 DAYS PAUSE)
     Route: 048
     Dates: start: 20210211, end: 20210314
  4. KISQALI [Suspect]
     Active Substance: RIBOCICLIB
     Indication: Breast cancer metastatic
     Dosage: 600 MG, QD, (SCHEME: 21 DAYS INTAKE, 7 DAYS PAUSE)
     Route: 048
     Dates: start: 20200128, end: 20210202
  5. KISQALI [Suspect]
     Active Substance: RIBOCICLIB
     Dosage: 600 MG, QD, (SCHEME: 21 DAYS INTAKE, 7 DAYS PAUSE)
     Route: 048
     Dates: start: 20210315, end: 20210829
  6. KISQALI [Suspect]
     Active Substance: RIBOCICLIB
     Dosage: 600 MG, QD, (SCHEME: 21 DAYS INTAKE, 7 DAYS PAUSE)
     Route: 048
     Dates: start: 20210330, end: 20220126
  7. LETROZOLE [Suspect]
     Active Substance: LETROZOLE
     Indication: Breast cancer metastatic
     Dosage: 2.5 MG, QD
     Route: 048
     Dates: start: 20200121, end: 20210829
  8. LETROZOLE [Suspect]
     Active Substance: LETROZOLE
     Indication: HER2 positive breast cancer

REACTIONS (1)
  - Neutropenia [Not Recovered/Not Resolved]

NARRATIVE: CASE EVENT DATE: 20200211
